FAERS Safety Report 4717376-8 (Version None)
Quarter: 2005Q3

REPORT INFORMATION
  Report Type: 
  Country: None (occurrence: None)
  Receive Date: 20050715
  Receipt Date: 20050705
  Transmission Date: 20060218
  Serious: Yes (Other)
  Sender: FDA-Public Use
  Company Number: 2005081316

PATIENT
  Sex: Male
  Weight: 182 kg

DRUGS (18)
  1. CELEBREX [Suspect]
     Indication: BACK PAIN
     Dosage: 200 MG (200 MG, 1 IN 1 D), ORAL
     Route: 048
     Dates: start: 20040201, end: 20050201
  2. CELEBREX [Suspect]
     Indication: SCIATICA
     Dosage: 200 MG (200 MG, 1 IN 1 D), ORAL
     Route: 048
     Dates: start: 20040201, end: 20050201
  3. SALMON OIL (SALMON OIL) [Concomitant]
  4. VITAMIN C (VITAMIN C) [Concomitant]
  5. VITAMIN E [Concomitant]
  6. MULTIVITAMINS WITH MINERALS (MULTIVITAMINS WITH MINERALS) [Concomitant]
  7. GLUCOSAMINE W/ CHONDROITIN SULFATE (ASCORBIC ACID, CHONDROITIN SULFATE [Concomitant]
  8. BETACAROTENE (BETACAROTENE) [Concomitant]
  9. MAGNESIUM CITRATE (MAGNESIUM CITRATE) [Concomitant]
  10. CO-Q-10 (UBIDECARENONE) [Concomitant]
  11. CALCIUM (CALCIUM) [Concomitant]
  12. ALL OTHER THERAPEUTIC PRODUCTS (ALL OTHER THERAPETUCIC PRODUCTS) [Concomitant]
  13. ASPIRIN [Concomitant]
  14. ALTACE [Concomitant]
  15. B COMPLEX (NICOTINAMIDE, PYRIDOXINE HYDROCHLORIDE, RIBOFLAVIN, THIAMIN [Concomitant]
  16. LESCOL [Concomitant]
  17. SELENIUM (SELENIUM) [Concomitant]
  18. NITROSTAT (NITROGLYCERYIN) [Concomitant]

REACTIONS (7)
  - ARTHRALGIA [None]
  - CONDITION AGGRAVATED [None]
  - DYSLIPIDAEMIA [None]
  - HYPERTENSION [None]
  - JOINT CREPITATION [None]
  - PAIN [None]
  - TREATMENT NONCOMPLIANCE [None]
